FAERS Safety Report 11266073 (Version 1)
Quarter: 2015Q2

REPORT INFORMATION
  Report Type: Spontaneous
  Country: US (occurrence: None)
  Receive Date: 20150625
  Receipt Date: 20150625
  Transmission Date: 20150821
  Serious: Yes (Hospitalization)
  Sender: FDA-Public Use
  Company Number: A-US2015-114333

PATIENT
  Age: 79 Year
  Sex: Female
  Weight: 67.1 kg

DRUGS (4)
  1. OPSUMIT [Suspect]
     Active Substance: MACITENTAN
     Indication: PULMONARY HYPERTENSION
     Route: 048
     Dates: start: 201412
  2. REVATIO (SILDENAFIL CITRATE) [Concomitant]
  3. COUMADIN [Concomitant]
     Active Substance: WARFARIN SODIUM
  4. REMODULIN [Suspect]
     Active Substance: TREPROSTINIL
     Indication: PULMONARY HYPERTENSION
     Dosage: 82 NG/KG, PER MIN, INTRAVENOUS
     Route: 042
     Dates: start: 20041103

REACTIONS (6)
  - Oedema [None]
  - Dyspnoea [None]
  - Right ventricular failure [None]
  - Oedema peripheral [None]
  - Fatigue [None]
  - Condition aggravated [None]

NARRATIVE: CASE EVENT DATE: 20150301
